FAERS Safety Report 9582191 (Version 2)
Quarter: 2013Q4

REPORT INFORMATION
  Report Type: Spontaneous
  Country: US (occurrence: US)
  Receive Date: 20131002
  Receipt Date: 20131002
  Transmission Date: 20140711
  Serious: No
  Sender: FDA-Public Use
  Company Number: US-AMGEN-USASP2013043654

PATIENT
  Age: 63 Year
  Sex: Female
  Weight: 65.76 kg

DRUGS (9)
  1. ENBREL [Suspect]
     Indication: RHEUMATOID ARTHRITIS
     Dosage: 50 MG, QWK
     Route: 065
     Dates: start: 20130501, end: 201306
  2. CRESTOR [Concomitant]
     Dosage: 20 MG, UNK
  3. ASPIRIN [Concomitant]
     Dosage: 325 MG, UNK
  4. FOLIC ACID [Concomitant]
     Dosage: UNK
  5. VITAMIN C                          /00008001/ [Concomitant]
     Dosage: 100 MG, UNK
  6. MULTIVITAMINS, PLAIN [Concomitant]
     Dosage: UNK
  7. TACLONEX [Concomitant]
     Dosage: UNK
  8. METHOTREXATE [Concomitant]
     Dosage: 1 G, UNK
  9. TOPROL [Concomitant]
     Dosage: 25 MG, UNK

REACTIONS (10)
  - Skin exfoliation [Unknown]
  - Injection site reaction [Unknown]
  - Injection site urticaria [Recovered/Resolved]
  - Injection site swelling [Unknown]
  - Injection site erythema [Unknown]
  - Injection site induration [Recovered/Resolved]
  - Injection site warmth [Recovered/Resolved]
  - Injection site vesicles [Unknown]
  - Injection site pruritus [Recovered/Resolved]
  - Injection site discolouration [Recovered/Resolved]
